FAERS Safety Report 14989227 (Version 1)
Quarter: 2018Q2

REPORT INFORMATION
  Report Type: Spontaneous
  Country: US (occurrence: US)
  Receive Date: 20180608
  Receipt Date: 20180608
  Transmission Date: 20180711
  Serious: No
  Sender: FDA-Public Use
  Company Number: US-009507513-1806USA003227

PATIENT
  Sex: Female

DRUGS (1)
  1. NEXPLANON [Suspect]
     Active Substance: ETONOGESTREL
     Indication: INTRA-UTERINE CONTRACEPTIVE DEVICE INSERTION
     Dosage: 68 MG, ONE TIME
     Route: 059
     Dates: start: 20160218, end: 20160811

REACTIONS (4)
  - Implant site inflammation [Unknown]
  - Implant site pain [Unknown]
  - Implant site pruritus [Unknown]
  - Implant site erythema [Unknown]

NARRATIVE: CASE EVENT DATE: 2016
